FAERS Safety Report 12541412 (Version 3)
Quarter: 2016Q3

REPORT INFORMATION
  Report Type: Spontaneous
  Country: US (occurrence: US)
  Receive Date: 20160708
  Receipt Date: 20160718
  Transmission Date: 20161109
  Serious: Yes (Hospitalization, Other)
  Sender: FDA-Public Use
  Company Number: US-JNJFOC-20160700725

PATIENT
  Age: 7 Year
  Sex: Male

DRUGS (6)
  1. CETIRIZINE HYDROCHLORIDE. [Suspect]
     Active Substance: CETIRIZINE HYDROCHLORIDE
     Route: 065
  2. ALUMINIUM HYDROXIDE W/MAGNESIUM HYDROXIDE [Suspect]
     Active Substance: ALUMINUM HYDROXIDE\MAGNESIUM HYDROXIDE
     Indication: ORAL PAIN
     Dosage: AS NEEDED
     Route: 065
  3. LIDOCAINE. [Suspect]
     Active Substance: LIDOCAINE
     Indication: ORAL PAIN
     Route: 065
  4. DIPHENHYDRAMINE HYDROCHLORIDE. [Suspect]
     Active Substance: DIPHENHYDRAMINE HYDROCHLORIDE
     Indication: ORAL PAIN
     Route: 065
  5. CETIRIZINE HYDROCHLORIDE. [Suspect]
     Active Substance: CETIRIZINE HYDROCHLORIDE
     Indication: RESPIRATORY SYMPTOM
     Route: 065
  6. ALBUTEROL. [Suspect]
     Active Substance: ALBUTEROL
     Indication: RESPIRATORY SYMPTOM
     Dosage: AS NEEDED
     Route: 055

REACTIONS (17)
  - Urethritis [Unknown]
  - Lip exfoliation [None]
  - Mucosal inflammation [None]
  - Post-tussive vomiting [Unknown]
  - Mycoplasma infection [Recovering/Resolving]
  - Rash maculo-papular [None]
  - Tongue ulceration [None]
  - Conjunctivitis [None]
  - Hypoaesthesia oral [Unknown]
  - Pneumonia mycoplasmal [Recovering/Resolving]
  - Face oedema [None]
  - Drooling [Unknown]
  - Drug ineffective for unapproved indication [Unknown]
  - Oral pain [None]
  - Lip swelling [None]
  - Hypoxia [Unknown]
  - Off label use [Unknown]
